FAERS Safety Report 22094342 (Version 4)
Quarter: 2023Q2

REPORT INFORMATION
  Report Type: Spontaneous
  Country: US (occurrence: US)
  Receive Date: 20230314
  Receipt Date: 20230515
  Transmission Date: 20230722
  Serious: Yes (Other)
  Sender: FDA-Public Use
  Company Number: US-Ipsen Biopharmaceuticals, Inc.-2023-05993

PATIENT
  Age: 64 Year
  Sex: Female

DRUGS (2)
  1. DYSPORT [Suspect]
     Active Substance: ABOBOTULINUMTOXINA
     Indication: Skin cosmetic procedure
     Dosage: TOTAL UNITS INJECTED - 102 UNITS
     Route: 065
     Dates: start: 20230223, end: 20230223
  2. VITAMINS [Concomitant]
     Active Substance: VITAMINS

REACTIONS (10)
  - Vitreous detachment [Not Recovered/Not Resolved]
  - Photopsia [Unknown]
  - Haemorrhage [Recovered/Resolved]
  - Vitreous floaters [Unknown]
  - Contusion [Recovered/Resolved]
  - Periorbital swelling [Recovered/Resolved]
  - Facial discomfort [Recovered/Resolved]
  - Vision blurred [Not Recovered/Not Resolved]
  - Eye pain [Unknown]
  - Off label use [Unknown]

NARRATIVE: CASE EVENT DATE: 20230223
